FAERS Safety Report 11813665 (Version 1)
Quarter: 2015Q4

REPORT INFORMATION
  Report Type: Spontaneous
  Country: US (occurrence: None)
  Receive Date: 20151208
  Receipt Date: 20151208
  Transmission Date: 20160305
  Serious: Yes (Death)
  Sender: FDA-Public Use
  Company Number: None

PATIENT
  Age: 18 Year
  Sex: Male
  Weight: 48.08 kg

DRUGS (5)
  1. PROZAC [Suspect]
     Active Substance: FLUOXETINE HYDROCHLORIDE
     Indication: AUTISM
     Dosage: 20 MG 4 PILLS ONCE DAILY MOUTH
     Route: 048
     Dates: start: 2012, end: 20140619
  2. PROZAC [Suspect]
     Active Substance: FLUOXETINE HYDROCHLORIDE
     Indication: ABNORMAL BEHAVIOUR
     Dosage: 20 MG 4 PILLS ONCE DAILY MOUTH
     Route: 048
     Dates: start: 2012, end: 20140619
  3. RISPERDONE [Concomitant]
     Active Substance: RISPERIDONE
  4. TYLENOL [Concomitant]
     Active Substance: ACETAMINOPHEN
  5. TOPAMAX [Concomitant]
     Active Substance: TOPIRAMATE

REACTIONS (2)
  - Fall [None]
  - Speech disorder [None]

NARRATIVE: CASE EVENT DATE: 20140619
